FAERS Safety Report 7465239-X (Version None)
Quarter: 2011Q2

REPORT INFORMATION
  Report Type: 
  Country: None (occurrence: None)
  Receive Date: 20110509
  Receipt Date: 20110429
  Transmission Date: 20111010
  Serious: Yes (Other)
  Sender: FDA-Public Use
  Company Number: PHFR2011GB02803

PATIENT
  Sex: Female

DRUGS (1)
  1. CLOZARIL [Suspect]
     Indication: SCHIZOPHRENIA
     Route: 048
     Dates: start: 20110314

REACTIONS (6)
  - GLOMERULAR FILTRATION RATE DECREASED [None]
  - DYSPNOEA [None]
  - BLOOD SODIUM DECREASED [None]
  - FATIGUE [None]
  - BLOOD CREATININE INCREASED [None]
  - ASTHENIA [None]
